FAERS Safety Report 22103042 (Version 2)
Quarter: 2023Q2

REPORT INFORMATION
  Report Type: Report from Study
  Country: US (occurrence: None)
  Receive Date: 20230316
  Receipt Date: 20230410
  Transmission Date: 20230721
  Serious: Yes (Hospitalization)
  Sender: FDA-Public Use
  Company Number: US-Eisai Medical Research-EC-2023-136045

PATIENT
  Age: 68 Year
  Sex: Male

DRUGS (2)
  1. LENVIMA [Suspect]
     Active Substance: LENVATINIB
     Indication: Hepatocellular carcinoma
     Route: 048
     Dates: start: 20230302, end: 202303
  2. LENVIMA [Suspect]
     Active Substance: LENVATINIB
     Route: 048
     Dates: start: 202304

REACTIONS (4)
  - Fall [Unknown]
  - Amnesia [Unknown]
  - Tremor [Unknown]
  - Nausea [Unknown]

NARRATIVE: CASE EVENT DATE: 20230301
